FAERS Safety Report 8776461 (Version 2)
Quarter: 2012Q4

REPORT INFORMATION
  Report Type: Report from Study
  Country: US (occurrence: US)
  Receive Date: 20120910
  Receipt Date: 20121018
  Transmission Date: 20130627
  Serious: Yes (Hospitalization)
  Sender: FDA-Public Use
  Company Number: US-JNJFOC-20120901695

PATIENT
  Age: 14 Year
  Sex: Female
  Weight: 50.7 kg

DRUGS (6)
  1. REMICADE [Suspect]
     Indication: INFLAMMATORY BOWEL DISEASE
     Route: 042
     Dates: start: 20040122
  2. 5-ASA [Concomitant]
     Route: 048
  3. METHOTREXATE [Concomitant]
  4. FOLIC ACID [Concomitant]
  5. ANTIBIOTICS [Concomitant]
     Indication: INFLAMMATORY BOWEL DISEASE
  6. MIRALAX [Concomitant]
     Dosage: Miralax (polyethylene glycol)

REACTIONS (2)
  - Haematemesis [Recovered/Resolved]
  - Hypotension [Recovered/Resolved]
